FAERS Safety Report 5403275-5 (Version None)
Quarter: 2007Q3

REPORT INFORMATION
  Report Type: 
  Country: None (occurrence: None)
  Receive Date: 20070801
  Receipt Date: 20070724
  Transmission Date: 20080115
  Serious: Yes (Hospitalization)
  Sender: FDA-Public Use
  Company Number: JP-PFIZER INC-2007061275

PATIENT
  Age: 75 Year
  Sex: Female

DRUGS (2)
  1. CELECOXIB [Suspect]
     Indication: BACK PAIN
     Route: 048
  2. WARFARIN SODIUM [Concomitant]
     Route: 048

REACTIONS (2)
  - HAEMORRHAGE SUBCUTANEOUS [None]
  - PROTHROMBIN TIME PROLONGED [None]
